FAERS Safety Report 15753668 (Version 1)
Quarter: 2018Q4

REPORT INFORMATION
  Report Type: Spontaneous
  Country: GB (occurrence: GB)
  Receive Date: 20181222
  Receipt Date: 20181222
  Transmission Date: 20190205
  Serious: Yes (Disabling)
  Sender: FDA-Public Use
  Company Number: GB-ACCORD-096740

PATIENT
  Age: 77 Year
  Sex: Female
  Weight: 87 kg

DRUGS (11)
  1. AZATHIOPRINE. [Concomitant]
     Active Substance: AZATHIOPRINE
     Dosage: BY GASTROENTEROLOGY. ( CURRENTLY ONE DAILY)
     Dates: start: 20171018
  2. PARACETAMOL [Concomitant]
     Active Substance: ACETAMINOPHEN
     Dosage: TAKE TWO 4 TIMES/DAY. SUPPLY CAPLETS
     Dates: start: 20160505
  3. PREDNISOLONE. [Concomitant]
     Active Substance: PREDNISOLONE
     Dosage: 30MG DAILY FOR 1 WEEK THEN REDUCE TOBY 5MG EACH...
     Dates: start: 20160831
  4. TIMOLOL. [Concomitant]
     Active Substance: TIMOLOL
     Dosage: BOTH EYES
     Dates: start: 20170920
  5. LATANOPROST. [Concomitant]
     Active Substance: LATANOPROST
     Dosage: EVERY EVENING
     Dates: start: 20160831, end: 20170920
  6. ALLOPURINOL. [Suspect]
     Active Substance: ALLOPURINOL
     Indication: PRODUCT USED FOR UNKNOWN INDICATION
  7. MEZAVANT XL [Concomitant]
     Active Substance: MESALAMINE
     Dates: start: 20161230, end: 20171018
  8. SALOFALK [Concomitant]
     Active Substance: MESALAMINE
     Dosage: AT NIGHT
     Dates: start: 20161230
  9. MESALAZINE [Concomitant]
     Active Substance: MESALAMINE
     Dosage: USE AS DIRECTED ONE AT NIGHT
     Dates: start: 20160601, end: 20171018
  10. ADCAL [Concomitant]
     Active Substance: CALCIUM CARBONATE
     Dates: start: 20160601
  11. RANITIDINE. [Concomitant]
     Active Substance: RANITIDINE
     Dosage: AT NIGHT FOR GASTROPROTECTION WHILST O...
     Dates: start: 20160601

REACTIONS (4)
  - Feeling cold [Unknown]
  - Diarrhoea [Unknown]
  - Chills [Recovered/Resolved]
  - Vomiting [Unknown]

NARRATIVE: CASE EVENT DATE: 20171106
